FAERS Safety Report 8142182-4 (Version None)
Quarter: 2012Q1

REPORT INFORMATION
  Report Type: 
  Country: None (occurrence: None)
  Receive Date: 20120103
  Receipt Date: 20111014
  Transmission Date: 20120608
  Serious: No
  Sender: FDA-Public Use
  Company Number: AE-2011-002380

PATIENT
  Age: 59 Year
  Sex: Male
  Weight: 92.0802 kg

DRUGS (4)
  1. RIBAVIRIN [Concomitant]
  2. HIV MEDICATIONS (ANTIVIRALS FOR SYSTEMIC USE) [Concomitant]
  3. INCIVEK [Suspect]
     Dosage: 2250 MG (750 MG,3 IN 1 D),ORAL
     Route: 048
     Dates: start: 20110930
  4. PEGINTERFERON (PEGINTERFERON ALFA-2A) [Concomitant]

REACTIONS (2)
  - DYSPNOEA [None]
  - AMNESIA [None]
